FAERS Safety Report 16245992 (Version 6)
Quarter: 2020Q3

REPORT INFORMATION
  Report Type: Report from Study
  Country: None (occurrence: KR)
  Receive Date: 20190426
  Receipt Date: 20200506
  Transmission Date: 20201104
  Serious: Yes (Hospitalization)
  Sender: FDA-Public Use
  Company Number: KR-ABBVIE-19P-090-2760965-00

PATIENT
  Age: 79 Year
  Sex: Female

DRUGS (18)
  1. IDASANUTLIN. [Suspect]
     Active Substance: IDASANUTLIN
     Indication: B-CELL LYMPHOMA
     Dosage: DAYS 1?5
     Route: 048
     Dates: start: 20190326, end: 20190330
  2. SALON H9C [Concomitant]
     Indication: PRODUCT USED FOR UNKNOWN INDICATION
     Route: 042
     Dates: start: 20190326, end: 20190326
  3. PENIRAMIN [Concomitant]
     Indication: PRODUCT USED FOR UNKNOWN INDICATION
     Route: 042
     Dates: start: 20190326, end: 20190326
  4. PENIRAMIN [Concomitant]
     Route: 042
     Dates: start: 20190401, end: 20190401
  5. PALONOSETRON. [Concomitant]
     Active Substance: PALONOSETRON HYDROCHLORIDE
     Indication: PRODUCT USED FOR UNKNOWN INDICATION
     Route: 042
     Dates: start: 20190326, end: 20190326
  6. GA101 [Suspect]
     Active Substance: OBINUTUZUMAB
     Indication: B-CELL LYMPHOMA
     Dosage: DAY 1, 8, AND 15
     Route: 042
     Dates: start: 20190326, end: 20190405
  7. VENETOCLAX. [Suspect]
     Active Substance: VENETOCLAX
     Indication: B-CELL LYMPHOMA
     Dosage: DAYS 1?10 OF EACH CYCLE
     Route: 048
     Dates: start: 20190326, end: 20190404
  8. IDASANUTLIN. [Suspect]
     Active Substance: IDASANUTLIN
     Dosage: DAYS 1?5
     Route: 048
  9. GA101 [Suspect]
     Active Substance: OBINUTUZUMAB
     Dosage: DAYS 1, 8, AND 15
     Route: 042
  10. SALON H9C [Concomitant]
     Route: 042
     Dates: start: 20190401, end: 20190401
  11. PENIRAMIN [Concomitant]
     Route: 042
     Dates: start: 20190405, end: 20190405
  12. TYLENOL ER [Concomitant]
     Active Substance: ACETAMINOPHEN
     Route: 048
     Dates: start: 20190401, end: 20190401
  13. FASTURTEC [Concomitant]
     Active Substance: RASBURICASE
     Indication: PRODUCT USED FOR UNKNOWN INDICATION
     Route: 042
     Dates: start: 20190326, end: 20190326
  14. VENETOCLAX. [Suspect]
     Active Substance: VENETOCLAX
     Dosage: DAYS 1?10 OF EACH CYCLE
     Route: 048
  15. TYLENOL ER [Concomitant]
     Active Substance: ACETAMINOPHEN
     Route: 048
     Dates: start: 20190405, end: 20190405
  16. SALON H9C [Concomitant]
     Route: 042
     Dates: start: 20190405, end: 20190405
  17. TYLENOL ER [Concomitant]
     Active Substance: ACETAMINOPHEN
     Indication: PRODUCT USED FOR UNKNOWN INDICATION
     Route: 048
     Dates: start: 20190326, end: 20190326
  18. FASTURTEC [Concomitant]
     Active Substance: RASBURICASE
     Route: 042
     Dates: start: 20190401, end: 20190401

REACTIONS (2)
  - Neutropenia [Recovered/Resolved]
  - Thrombocytopenia [Recovered/Resolved]

NARRATIVE: CASE EVENT DATE: 20190405
